FAERS Safety Report 7884935-3 (Version None)
Quarter: 2011Q4

REPORT INFORMATION
  Report Type: 
  Country: None (occurrence: None)
  Receive Date: 20111102
  Receipt Date: 20110930
  Transmission Date: 20120403
  Serious: Yes (Other)
  Sender: FDA-Public Use
  Company Number: PHHY2011AU86663

PATIENT
  Sex: Male

DRUGS (3)
  1. CLOZARIL [Suspect]
     Dosage: 350 MG,
     Route: 048
  2. CLOZARIL [Suspect]
     Dosage: 300 MG,
     Route: 048
  3. CLOZARIL [Suspect]
     Dosage: 12.5 MG,
     Route: 048
     Dates: start: 20110901

REACTIONS (7)
  - GLUCOSE TOLERANCE IMPAIRED [None]
  - NOREPINEPHRINE INCREASED [None]
  - MYOSITIS [None]
  - HYPERTENSION [None]
  - BLOOD CREATINE PHOSPHOKINASE INCREASED [None]
  - TACHYCARDIA [None]
  - PHAEOCHROMOCYTOMA [None]
